FAERS Safety Report 9125332 (Version 1)
Quarter: 2013Q1

REPORT INFORMATION
  Report Type: Spontaneous
  Country: US (occurrence: US)
  Receive Date: 20130227
  Receipt Date: 20130227
  Transmission Date: 20140127
  Serious: Yes (Death, Hospitalization)
  Sender: FDA-Public Use
  Company Number: US-GLAXOSMITHKLINE-A0790960A

PATIENT
  Age: 62 Year
  Sex: Male

DRUGS (2)
  1. ROSIGLITAZONE MALEATE [Suspect]
     Indication: DIABETES MELLITUS
     Dosage: 8MG SEE DOSAGE TEXT
     Route: 048
     Dates: start: 200507, end: 200508
  2. AVANDARYL [Suspect]
     Indication: TYPE 2 DIABETES MELLITUS
     Route: 048
     Dates: start: 2005, end: 200706

REACTIONS (4)
  - Cardiovascular disorder [Unknown]
  - Injury [Unknown]
  - Cardiac disorder [Unknown]
  - Death [Fatal]
